FAERS Safety Report 4882151-0 (Version None)
Quarter: 2006Q1

REPORT INFORMATION
  Report Type: 
  Country: None (occurrence: None)
  Receive Date: 20060117
  Receipt Date: 20051220
  Transmission Date: 20060701
  Serious: Yes (Death, Hospitalization)
  Sender: FDA-Public Use
  Company Number: US-MERCK-0512USA03316

PATIENT
  Age: 60 Year
  Sex: Female

DRUGS (6)
  1. VIOXX [Suspect]
     Indication: ARTHRALGIA
     Route: 048
     Dates: start: 19990101, end: 20040901
  2. LANOXIN [Concomitant]
     Route: 065
  3. PRINZIDE [Concomitant]
     Route: 065
  4. PREMARIN [Concomitant]
     Route: 065
  5. ZOLOFT [Concomitant]
     Route: 065
  6. DEMADEX [Concomitant]
     Route: 065

REACTIONS (34)
  - ANAEMIA [None]
  - BRAIN STEM INFARCTION [None]
  - CARDIAC FAILURE CONGESTIVE [None]
  - CARDIO-RESPIRATORY ARREST [None]
  - CARDIOGENIC SHOCK [None]
  - CARDIOMYOPATHY [None]
  - CEREBELLAR INFARCTION [None]
  - CONFUSIONAL STATE [None]
  - DEHYDRATION [None]
  - DEMENTIA [None]
  - DEPRESSED LEVEL OF CONSCIOUSNESS [None]
  - DIABETES MELLITUS INADEQUATE CONTROL [None]
  - FALL [None]
  - FEMUR FRACTURE [None]
  - GASTRIC DISORDER [None]
  - GASTROENTERITIS [None]
  - GENERAL PHYSICAL HEALTH DETERIORATION [None]
  - GOUT [None]
  - HYPERKALAEMIA [None]
  - HYPONATRAEMIA [None]
  - HYPOXIA [None]
  - LEG AMPUTATION [None]
  - LOWER LIMB FRACTURE [None]
  - MENTAL STATUS CHANGES [None]
  - MULTI-ORGAN FAILURE [None]
  - MYOCARDIAL INFARCTION [None]
  - NEUROPATHIC ARTHROPATHY [None]
  - ORGAN FAILURE [None]
  - OXYGEN SATURATION DECREASED [None]
  - PEPTIC ULCER [None]
  - PNEUMONIA ASPIRATION [None]
  - RENAL FAILURE ACUTE [None]
  - RESPIRATORY FAILURE [None]
  - THERAPEUTIC AGENT TOXICITY [None]
